FAERS Safety Report 6985030-8 (Version None)
Quarter: 2010Q3

REPORT INFORMATION
  Report Type: 
  Country: None (occurrence: None)
  Receive Date: 20100915
  Receipt Date: 20100903
  Transmission Date: 20110219
  Serious: Yes (Other)
  Sender: FDA-Public Use
  Company Number: PHHY2010ES59549

PATIENT
  Age: 56 Year
  Sex: Female

DRUGS (7)
  1. SANDIMMUNE [Suspect]
     Indication: PANNICULITIS
     Dosage: 150 MG, BID
  2. SANDIMMUNE [Suspect]
     Dosage: 100 MG, BID
  3. SANDIMMUNE [Suspect]
     Dosage: 75 MG, BID
  4. SANDIMMUNE [Suspect]
     Dosage: 50 MG, BID
  5. PREDNISONE [Concomitant]
  6. ANTIHYPERTENSIVE DRUGS [Concomitant]
  7. TACROLIMUS [Concomitant]

REACTIONS (5)
  - HISTIOCYTOSIS HAEMATOPHAGIC [None]
  - HYPERTENSION [None]
  - NODULE [None]
  - PANNICULITIS [None]
  - PYREXIA [None]
